FAERS Safety Report 8409902 (Version 2)
Quarter: 2012Q4

REPORT INFORMATION
  Report Type: 
  Country: GB (occurrence: GB)
  Receive Date: 20120216
  Receipt Date: 20121002
  Transmission Date: 20130627
  Serious: Yes (Death)
  Sender: FDA-Public Use
  Company Number: GB-TEVA-321590ISR

PATIENT
  Age: 36 Year
  Sex: Male

DRUGS (8)
  1. SIMVASTATIN [Suspect]
     Route: 048
  2. ARIPIPRAZOLE [Suspect]
     Indication: SCHIZOPHRENIA
     Route: 048
  3. CLOZAPINE [Suspect]
     Indication: SCHIZOPHRENIA
     Route: 048
     Dates: end: 20120109
  4. FOLIC ACID [Concomitant]
  5. SODIUM VALPROATE [Concomitant]
  6. WARFARIN [Concomitant]
  7. CLONAZEPAM [Concomitant]
  8. OMEPRAZOLE [Concomitant]

REACTIONS (7)
  - Neuroleptic malignant syndrome [Fatal]
  - Peritonitis [Fatal]
  - Large intestine perforation [Fatal]
  - Circulatory collapse [Unknown]
  - Blood creatine phosphokinase increased [Unknown]
  - Renal impairment [Unknown]
  - Hepatic function abnormal [Unknown]
